FAERS Safety Report 10185082 (Version 1)
Quarter: 2014Q2

REPORT INFORMATION
  Report Type: Report from Study
  Country: AU (occurrence: None)
  Receive Date: 20140519
  Receipt Date: 20140519
  Transmission Date: 20141212
  Serious: Yes (Other)
  Sender: FDA-Public Use
  Company Number: 2014-19526

PATIENT
  Age: 81 Year
  Sex: Female

DRUGS (2)
  1. EYLEA [Suspect]
     Indication: AGE-RELATED MACULAR DEGENERATION
     Dosage: 2 MG EVERY 8 WEEKS INTRAOCULAR
     Route: 031
     Dates: start: 20130123
  2. EYLEA [Suspect]
     Indication: AGE-RELATED MACULAR DEGENERATION
     Dosage: 2 MG EVERY 8 WEEKS INTRAOCULAR
     Route: 031
     Dates: start: 20130123

REACTIONS (4)
  - Injection site pain [None]
  - Eye pain [None]
  - Lacrimation increased [None]
  - Knee arthroplasty [None]
